FAERS Safety Report 21266493 (Version 2)
Quarter: 2022Q3

REPORT INFORMATION
  Report Type: Spontaneous
  Country: TH (occurrence: TH)
  Receive Date: 20220829
  Receipt Date: 20220930
  Transmission Date: 20221027
  Serious: No
  Sender: FDA-Public Use
  Company Number: TH-MACLEODS PHARMACEUTICALS US LTD-MAC2022036983

PATIENT

DRUGS (3)
  1. MONTELUKAST [Suspect]
     Active Substance: MONTELUKAST SODIUM
     Indication: Bronchial disorder
     Dosage: 4 MILLIGRAM, QD (DRUG FORMULARY FROM GRANULES, AT THE AGE OF 1 YEAR AND 2 MONTHS) MONTELUKAST 4 MG G
     Route: 048
  2. MONTELUKAST [Suspect]
     Active Substance: MONTELUKAST SODIUM
     Dosage: 5 MILLIGRAM, QD (HALF A TABLET, AT THE AGE OF 2 YEARS AND 5 MONTHS); MONTELUKAST 10 MG
     Route: 048
  3. FLUTICASONE PROPIONATE\SALMETEROL XINAFOATE [Concomitant]
     Active Substance: FLUTICASONE PROPIONATE\SALMETEROL XINAFOATE
     Indication: Hyperresponsive to stimuli
     Dosage: 1 DOSAGE FORM, QD (1 PUFF VIA NEBULIZER, ONCE DAILY)

REACTIONS (2)
  - Apathy [Recovered/Resolved]
  - Mutism [Recovered/Resolved]
